FAERS Safety Report 23044257 (Version 1)
Quarter: 2023Q4

REPORT INFORMATION
  Report Type: Report from Study
  Country: BR (occurrence: BR)
  Receive Date: 20231009
  Receipt Date: 20231009
  Transmission Date: 20240110
  Serious: Yes (Hospitalization)
  Sender: FDA-Public Use
  Company Number: BR-002147023-NVSC2023BR215670

PATIENT
  Sex: Female

DRUGS (1)
  1. ENTRESTO [Suspect]
     Active Substance: SACUBITRIL\VALSARTAN
     Indication: Product used for unknown indication
     Dosage: 50 MG/KG, BID
     Route: 048
     Dates: start: 20230301

REACTIONS (6)
  - Seizure [Recovering/Resolving]
  - Cerebrovascular accident [Unknown]
  - Tremor [Recovering/Resolving]
  - Aphonia [Recovering/Resolving]
  - Sluggishness [Recovering/Resolving]
  - Memory impairment [Recovering/Resolving]

NARRATIVE: CASE EVENT DATE: 20230101
